FAERS Safety Report 7850912-1 (Version None)
Quarter: 2011Q3

REPORT INFORMATION
  Report Type: 
  Country: None (occurrence: None)
  Receive Date: 20110901
  Receipt Date: 20101115
  Transmission Date: 20111222
  Serious: Yes (Disabling, Other)
  Sender: FDA-Public Use
  Company Number: 253334USA

PATIENT
  Sex: Female

DRUGS (2)
  1. METOCLOPRAMIDE [Suspect]
     Indication: ABDOMINAL PAIN
     Dosage: (10 MG)
     Dates: start: 20001001, end: 20090801
  2. METOCLOPRAMIDE [Suspect]
     Indication: DYSPEPSIA
     Dosage: (10 MG)
     Dates: start: 20001001, end: 20090801

REACTIONS (2)
  - DYSKINESIA [None]
  - TARDIVE DYSKINESIA [None]
